FAERS Safety Report 6536721-4 (Version None)
Quarter: 2010Q1

REPORT INFORMATION
  Report Type: 
  Country: None (occurrence: None)
  Receive Date: 20100113
  Receipt Date: 20100107
  Transmission Date: 20100710
  Serious: Yes (Other)
  Sender: FDA-Public Use
  Company Number: US-PFIZER INC-2010003701

PATIENT
  Age: 68 Year
  Sex: Female
  Weight: 47.619 kg

DRUGS (7)
  1. LYRICA [Suspect]
     Indication: SPINAL COLUMN STENOSIS
     Dosage: 75 MG, 2X/DAY
     Route: 048
     Dates: start: 20100106
  2. LYRICA [Suspect]
     Indication: SCOLIOSIS
  3. METHADONE [Concomitant]
     Dosage: 10 MG, 3X/DAY
     Route: 048
  4. VYTORIN [Concomitant]
     Dosage: UNK
     Route: 048
  5. AZOR [Concomitant]
     Indication: HYPERTENSION
     Dosage: UNK
     Route: 048
  6. NEBIVOLOL [Concomitant]
     Dosage: UNK
     Route: 048
  7. SIMVASTATIN [Concomitant]
     Dosage: UNK
     Route: 048

REACTIONS (2)
  - DIPLOPIA [None]
  - DIZZINESS [None]
